FAERS Safety Report 4525213-X (Version None)
Quarter: 2004Q4

REPORT INFORMATION
  Report Type: 
  Country: None (occurrence: None)
  Receive Date: 20041116
  Receipt Date: 20040723
  Transmission Date: 20050328
  Serious: No
  Sender: FDA-Public Use
  Company Number: S04-USA-04928-01

PATIENT
  Age: 47 Year
  Sex: Female

DRUGS (7)
  1. NAMENDA [Suspect]
     Indication: DEMENTIA
     Dates: start: 20040601, end: 20040101
  2. NAMENDA [Suspect]
     Indication: DEMENTIA
     Dates: start: 20040101
  3. REMINYL [Concomitant]
  4. PAXIL [Concomitant]
  5. CERE FOLIN (NOS) [Concomitant]
  6. LEVOXYL [Concomitant]
  7. DIOVAN ^NOVARTIS^ (VALSARTAN) [Concomitant]

REACTIONS (1)
  - EYE IRRITATION [None]
